FAERS Safety Report 23513185 (Version 1)
Quarter: 2024Q1

REPORT INFORMATION
  Report Type: Spontaneous
  Country: US (occurrence: None)
  Receive Date: 20240210
  Receipt Date: 20240210
  Transmission Date: 20240409
  Serious: Yes (Other)
  Sender: FDA-Public Use
  Company Number: None

PATIENT
  Age: 69 Year
  Sex: Female
  Weight: 94.95 kg

DRUGS (18)
  1. COMIRNATY (TOZINAMERAN) [Suspect]
     Active Substance: TOZINAMERAN
     Indication: COVID-19
  2. CARVEDILOL [Suspect]
     Active Substance: CARVEDILOL
     Indication: Blood pressure measurement
     Dosage: OTHER QUANTITY : 1 TABLET(S);?FREQUENCY : TWICE A DAY;?
     Route: 048
  3. CARVEDILOL [Suspect]
     Active Substance: CARVEDILOL
     Indication: Palpitations
  4. CELECOXIB [Concomitant]
     Active Substance: CELECOXIB
  5. Metformin HCI ER [Concomitant]
  6. GLIPIZIDE ER [Concomitant]
     Active Substance: GLIPIZIDE
  7. Basaglar KwikPen injection [Concomitant]
  8. ROSUVASTATIN CALCIUM [Concomitant]
     Active Substance: ROSUVASTATIN CALCIUM
  9. LATANOPROST [Concomitant]
     Active Substance: LATANOPROST
  10. TIMOLOL MALEATE [Concomitant]
     Active Substance: TIMOLOL MALEATE
  11. Medoxomil-HCTZ [Concomitant]
  12. LEVOTHYROXINE SODIUM [Concomitant]
     Active Substance: LEVOTHYROXINE SODIUM
  13. AMLODIPINE [Concomitant]
     Active Substance: AMLODIPINE BESYLATE
  14. ASPIRIN [Concomitant]
     Active Substance: ASPIRIN
  15. Complete Multivitamins [Concomitant]
  16. Calcium-Citrate/ D3 [Concomitant]
  17. CHONDROITIN SULFATE (BOVINE)\GLUCOSAMINE SULFATE [Concomitant]
     Active Substance: CHONDROITIN SULFATE (BOVINE)\GLUCOSAMINE SULFATE
  18. B12 sublingual [Concomitant]

REACTIONS (2)
  - Cardiac flutter [None]
  - Heart rate decreased [None]

NARRATIVE: CASE EVENT DATE: 20240109
